FAERS Safety Report 8186938-0 (Version None)
Quarter: 2012Q1

REPORT INFORMATION
  Report Type: 
  Country: None (occurrence: None)
  Receive Date: 20120213
  Receipt Date: 20111102
  Transmission Date: 20120608
  Serious: No
  Sender: FDA-Public Use
  Company Number: 1000025162

PATIENT
  Age: 57 Year
  Sex: Male

DRUGS (2)
  1. SAVELLA [Suspect]
     Indication: FIBROMYALGIA
     Dosage: 50 MG (50 MG, 1 IN 1 D); 10 MG (10 MG, 1 IN 1D) JUL/AUG-2011 - STOPPED
     Dates: end: 20111001
  2. BYSTOLIC [Concomitant]

REACTIONS (11)
  - TESTICULAR PAIN [None]
  - ABDOMINAL PAIN UPPER [None]
  - DIARRHOEA [None]
  - PYREXIA [None]
  - ERECTILE DYSFUNCTION [None]
  - TESTICULAR SWELLING [None]
  - CHILLS [None]
  - FEELING ABNORMAL [None]
  - VOMITING [None]
  - HYPERHIDROSIS [None]
  - TREMOR [None]
